FAERS Safety Report 8003225-1 (Version None)
Quarter: 2011Q4

REPORT INFORMATION
  Report Type: 
  Country: None (occurrence: None)
  Receive Date: 20111222
  Receipt Date: 20111216
  Transmission Date: 20120403
  Serious: Yes (Other)
  Sender: FDA-Public Use
  Company Number: PHHO2011PL17406

PATIENT
  Sex: Female
  Weight: 59 kg

DRUGS (2)
  1. ANTEOVIN [Concomitant]
     Indication: CONTRACEPTION
     Dosage: UNK
     Dates: start: 20071229, end: 20110101
  2. FTY [Suspect]
     Indication: MULTIPLE SCLEROSIS
     Dosage: 0.5 MG, UNK
     Dates: start: 20100319, end: 20111013

REACTIONS (2)
  - VULVAL ABSCESS [None]
  - BASAL CELL CARCINOMA [None]
